FAERS Safety Report 8426400-0 (Version None)
Quarter: 2012Q2

REPORT INFORMATION
  Report Type: 
  Country: None (occurrence: None)
  Receive Date: 20120523
  Receipt Date: 20120511
  Transmission Date: 20120825
  Serious: Yes (Death, Other)
  Sender: FDA-Public Use
  Company Number: 2011028167

PATIENT
  Age: 70 Year
  Sex: Male

DRUGS (1)
  1. PRIVIGEN [Suspect]
     Indication: IMMUNODEFICIENCY COMMON VARIABLE
     Dosage: 60 G
     Route: 042
     Dates: start: 20100930

REACTIONS (4)
  - PANCYTOPENIA [None]
  - REFRACTORY ANAEMIA [None]
  - MYELODYSPLASTIC SYNDROME [None]
  - SEPSIS [None]
